FAERS Safety Report 22024683 (Version 1)
Quarter: 2023Q1

REPORT INFORMATION
  Report Type: Spontaneous
  Country: US (occurrence: None)
  Receive Date: 20230223
  Receipt Date: 20230223
  Transmission Date: 20230418
  Serious: No
  Sender: FDA-Public Use
  Company Number: US-ROCHE-3037210

PATIENT
  Age: 40 Year
  Sex: Female

DRUGS (1)
  1. XOLAIR [Suspect]
     Active Substance: OMALIZUMAB
     Indication: Chronic spontaneous urticaria
     Dosage: FORM OF ADMIN: SOLUTION FOR INFUSION + ROUTE OF ADMIN: INTRAMUSCULAR
     Route: 065
     Dates: start: 20220127, end: 20220127

REACTIONS (2)
  - Urticaria [Recovered/Resolved]
  - Hyperventilation [Recovered/Resolved]

NARRATIVE: CASE EVENT DATE: 20220127
